FAERS Safety Report 6107337-9 (Version None)
Quarter: 2009Q1

REPORT INFORMATION
  Report Type: 
  Country: None (occurrence: None)
  Receive Date: 20090309
  Receipt Date: 20090308
  Transmission Date: 20090719
  Serious: Yes (Other)
  Sender: FDA-Public Use
  Company Number: US-PFIZER INC-2008154830

PATIENT
  Sex: Female

DRUGS (1)
  1. DIFLUCAN [Suspect]

REACTIONS (2)
  - LIP PAIN [None]
  - ORAL PAIN [None]
